FAERS Safety Report 9098506 (Version 1)
Quarter: 2013Q1

REPORT INFORMATION
  Report Type: Spontaneous
  Country: ZA (occurrence: ZA)
  Receive Date: 20130213
  Receipt Date: 20130213
  Transmission Date: 20140127
  Serious: Yes (Disabling, Other)
  Sender: FDA-Public Use
  Company Number: PHHY2013ZA012989

PATIENT
  Age: 45 Year
  Sex: Female

DRUGS (1)
  1. ACLASTA [Suspect]
     Indication: OSTEOPOROSIS
     Dosage: 5 MG, UNK
     Route: 042
     Dates: start: 2012

REACTIONS (9)
  - Paralysis [Recovered/Resolved]
  - Blindness [Recovered/Resolved]
  - Photophobia [Recovered/Resolved]
  - Renal pain [Recovered/Resolved]
  - Cystitis [Recovered/Resolved]
  - Haematemesis [Recovered/Resolved]
  - Vision blurred [Recovered/Resolved]
  - Ocular hyperaemia [Recovered/Resolved]
  - Urinary tract infection [Unknown]
